FAERS Safety Report 10265655 (Version 1)
Quarter: 2014Q2

REPORT INFORMATION
  Report Type: Spontaneous
  Country: AU (occurrence: AU)
  Receive Date: 20140627
  Receipt Date: 20140627
  Transmission Date: 20141212
  Serious: Yes (Other)
  Sender: FDA-Public Use
  Company Number: AU-B.I. PHARMACEUTICALS,INC./RIDGEFIELD-2014-BI-28770AU

PATIENT
  Age: 77 Year
  Sex: Female

DRUGS (4)
  1. TWYNSTA [Suspect]
     Indication: PRODUCT USED FOR UNKNOWN INDICATION
     Route: 065
  2. MICARDIS PLUS [Suspect]
     Indication: PRODUCT USED FOR UNKNOWN INDICATION
     Route: 065
     Dates: start: 201405
  3. LOSEC [Concomitant]
     Route: 065
  4. SLEEPING TABLET [Concomitant]
     Route: 065

REACTIONS (5)
  - Cerebrovascular accident [Unknown]
  - Swelling [Unknown]
  - Blood pressure abnormal [Unknown]
  - Headache [Unknown]
  - Paraesthesia [Unknown]
